FAERS Safety Report 15979079 (Version 1)
Quarter: 2019Q1

REPORT INFORMATION
  Report Type: Spontaneous
  Country: ES (occurrence: ES)
  Receive Date: 20190219
  Receipt Date: 20190219
  Transmission Date: 20190418
  Serious: Yes (Other)
  Sender: FDA-Public Use
  Company Number: ES-AMGEN-ESPSP2019024927

PATIENT
  Age: 64 Year
  Sex: Female

DRUGS (5)
  1. KYPROLIS [Suspect]
     Active Substance: CARFILZOMIB
     Indication: PLASMA CELL MYELOMA
     Dosage: UNK, (1 VIAL)
     Route: 042
     Dates: start: 20170902, end: 20180226
  2. REVLIMID [Concomitant]
     Active Substance: LENALIDOMIDE
     Indication: PLASMA CELL MYELOMA
     Dosage: 25 MG, UNK (25 MG HARD CAPSULES, 21 CAPSULES)
     Route: 048
     Dates: start: 20170902, end: 20180226
  3. DEXAMETASONA KRKA [Concomitant]
     Indication: PLASMA CELL MYELOMA
     Dosage: 20 MG, UNK (20 MG TABLETS, 30 TABLETS)
     Route: 048
     Dates: start: 20170902, end: 20180226
  4. HIBOR (BEMIPARIN SODIUM) [Concomitant]
     Active Substance: BEMIPARIN SODIUM
     Indication: PROPHYLAXIS
     Dosage: 3500 MG, UNK
     Route: 058
     Dates: start: 20170902, end: 20180301
  5. ACICLOVIR PHARMAGENUS [Concomitant]
     Indication: PROPHYLAXIS
     Dosage: 800 MG, UNK (500 TABLETS)
     Route: 048
     Dates: start: 20170902

REACTIONS (1)
  - Dermatitis psoriasiform [Recovered/Resolved]

NARRATIVE: CASE EVENT DATE: 20170920
